FAERS Safety Report 26163656 (Version 1)
Quarter: 2025Q4

REPORT INFORMATION
  Report Type: Spontaneous
  Country: US (occurrence: None)
  Receive Date: 20251216
  Receipt Date: 20251216
  Transmission Date: 20260117
  Serious: No
  Sender: FDA-CTU
  Company Number: None

PATIENT

DRUGS (1)
  1. KISQALI [Suspect]
     Active Substance: RIBOCICLIB SUCCINATE

REACTIONS (6)
  - Immunosuppression [None]
  - Infection [None]
  - Fatigue [None]
  - Aphonia [None]
  - Pain [None]
  - Dyspnoea [None]
